FAERS Safety Report 8364228-0 (Version None)
Quarter: 2012Q1

REPORT INFORMATION
  Report Type: 
  Country: None (occurrence: None)
  Receive Date: 20120323
  Receipt Date: 20110930
  Transmission Date: 20120608
  Serious: Yes (Other)
  Sender: FDA-Public Use
  Company Number: 163-21880-11111536

PATIENT
  Age: 85 Year
  Sex: Female

DRUGS (2)
  1. REVLIMID [Suspect]
     Indication: MULTIPLE MYELOMA
     Dosage: 25 MG, DAILY FOR 21 DAYS THEN 7 DAYS OFF, PO, 15 MG, QD X 21 DAYS, PO
     Route: 048
     Dates: start: 20110906
  2. REVLIMID [Suspect]
     Indication: MULTIPLE MYELOMA
     Dosage: 25 MG, DAILY FOR 21 DAYS THEN 7 DAYS OFF, PO, 15 MG, QD X 21 DAYS, PO
     Route: 048
     Dates: start: 20111001

REACTIONS (1)
  - FULL BLOOD COUNT ABNORMAL [None]
